FAERS Safety Report 7837472-6 (Version None)
Quarter: 2011Q4

REPORT INFORMATION
  Report Type: 
  Country: None (occurrence: None)
  Receive Date: 20111024
  Receipt Date: 20101118
  Transmission Date: 20120403
  Serious: No
  Sender: FDA-Public Use
  Company Number: US-ABBOTT-10P-163-0687062-00

PATIENT
  Sex: Female
  Weight: 87.622 kg

DRUGS (4)
  1. GLYBURIDE [Concomitant]
     Indication: DIABETES MELLITUS
  2. NORETHINACE [Concomitant]
     Indication: UTERINE LEIOMYOMA
  3. METFORMIN HCL [Concomitant]
     Indication: DIABETES MELLITUS
  4. LUPRON DEPOT [Suspect]
     Indication: UTERINE LEIOMYOMA
     Dates: start: 20100908, end: 20101118

REACTIONS (2)
  - DRUG INEFFECTIVE [None]
  - VAGINAL HAEMORRHAGE [None]
